FAERS Safety Report 24955954 (Version 1)
Quarter: 2025Q1

REPORT INFORMATION
  Report Type: Spontaneous
  Country: US (occurrence: US)
  Receive Date: 20250211
  Receipt Date: 20250211
  Transmission Date: 20250409
  Serious: No
  Sender: CALLIDITAS THERAPEUTICS AB
  Company Number: US-Calliditas-2025CAL00277

PATIENT
  Age: 29 Year
  Sex: Female

DRUGS (1)
  1. TARPEYO [Suspect]
     Active Substance: BUDESONIDE
     Dosage: PHYSICIAN LOWERED THE DOSE FROM 16MG TO 12 MG.
     Route: 048
     Dates: start: 20241113

REACTIONS (1)
  - Muscle spasms [Unknown]
